FAERS Safety Report 5913851-9 (Version None)
Quarter: 2008Q4

REPORT INFORMATION
  Report Type: 
  Country: None (occurrence: None)
  Receive Date: 20081009
  Receipt Date: 20080930
  Transmission Date: 20090506
  Serious: Yes (Death)
  Sender: FDA-Public Use
  Company Number: A0750700A

PATIENT
  Age: 46 Year
  Sex: Female

DRUGS (10)
  1. ONDANSETRON [Suspect]
     Indication: DRUG USE FOR UNKNOWN INDICATION
     Route: 065
  2. RANITIDINE [Suspect]
     Indication: DRUG USE FOR UNKNOWN INDICATION
     Route: 065
  3. KADIAN [Suspect]
     Indication: BACK PAIN
     Dosage: 60MG TWICE PER DAY
     Route: 048
     Dates: start: 20080424, end: 20080501
  4. PERCOCET [Suspect]
     Indication: PAIN
     Dosage: 1TAB AS REQUIRED
     Route: 048
     Dates: end: 20080101
  5. TRAZODONE HCL [Suspect]
     Indication: DRUG USE FOR UNKNOWN INDICATION
     Dosage: 200MG UNKNOWN
     Route: 048
     Dates: end: 20080101
  6. ZOLPIDEM [Suspect]
     Indication: DRUG USE FOR UNKNOWN INDICATION
     Dosage: 1TAB AT NIGHT
     Route: 048
     Dates: end: 20080101
  7. MEPROBAMATE [Suspect]
     Indication: DRUG USE FOR UNKNOWN INDICATION
     Route: 065
     Dates: end: 20080101
  8. PROMETHAZINE [Suspect]
     Indication: DRUG USE FOR UNKNOWN INDICATION
     Route: 065
     Dates: end: 20080101
  9. KLONOPIN [Suspect]
     Indication: DRUG USE FOR UNKNOWN INDICATION
     Dosage: 1MG THREE TIMES PER DAY
     Route: 048
     Dates: end: 20080101
  10. LITHIUM CITRATE [Suspect]
     Indication: DRUG USE FOR UNKNOWN INDICATION
     Dosage: 200MG THREE TIMES PER DAY
     Route: 048
     Dates: end: 20080101

REACTIONS (19)
  - ACCIDENTAL DEATH [None]
  - ATELECTASIS [None]
  - BIPOLAR DISORDER [None]
  - CONSTIPATION [None]
  - DRUG SCREEN POSITIVE [None]
  - DRUG TOXICITY [None]
  - ECCHYMOSIS [None]
  - EXCORIATION [None]
  - HAEMATOMA [None]
  - HEPATIC CIRRHOSIS [None]
  - HYPERPLASIA [None]
  - LIPOATROPHY [None]
  - LOSS OF CONSCIOUSNESS [None]
  - PITTING OEDEMA [None]
  - PULMONARY CONGESTION [None]
  - RENAL DISORDER [None]
  - SWELLING FACE [None]
  - SYNCOPE [None]
  - VICTIM OF SEXUAL ABUSE [None]
